FAERS Safety Report 15011745 (Version 2)
Quarter: 2018Q3

REPORT INFORMATION
  Report Type: Spontaneous
  Country: DE (occurrence: DE)
  Receive Date: 20180614
  Receipt Date: 20180910
  Transmission Date: 20181010
  Serious: Yes (Death, Congenital Anomaly)
  Sender: FDA-Public Use
  Company Number: DE-BAYER-2018-105965

PATIENT
  Age: 0 Day
  Sex: Male
  Weight: 2.31 kg

DRUGS (2)
  1. JAYDESS [Suspect]
     Active Substance: LEVONORGESTREL
     Indication: CONTRACEPTION
     Dosage: 14 MCG/24HR, CONT, FROM 0. ? 37.4. GESTATIONAL WEEK
     Route: 064
     Dates: start: 20170701, end: 20180321
  2. FOLIC ACID. [Concomitant]
     Active Substance: FOLIC ACID
     Indication: PROPHYLAXIS OF NEURAL TUBE DEFECT
     Dosage: 0.8MG/D ? 0.4 MG/D FROM 6.2. ? 37.4. GESTATIONAL WEEK
     Route: 064
     Dates: start: 20170814, end: 20180321

REACTIONS (9)
  - Retrognathia [Fatal]
  - Cleft palate [Fatal]
  - Cerebellar hypoplasia [None]
  - Patent ductus arteriosus [Fatal]
  - Pulmonary hypoplasia [Fatal]
  - Low birth weight baby [None]
  - Congenital diaphragmatic hernia [Fatal]
  - Death neonatal [Fatal]
  - Atrial septal defect [Fatal]

NARRATIVE: CASE EVENT DATE: 20180321
